FAERS Safety Report 8326099-8 (Version None)
Quarter: 2012Q2

REPORT INFORMATION
  Report Type: 
  Country: None (occurrence: None)
  Receive Date: 20120501
  Receipt Date: 20120424
  Transmission Date: 20120825
  Serious: Yes (Hospitalization)
  Sender: FDA-Public Use
  Company Number: US-B.I. PHARMACEUTICALS,INC./RIDGEFIELD-2012-BP-09651BP

PATIENT

DRUGS (2)
  1. ASPIRIN [Concomitant]
  2. PRADAXA [Suspect]

REACTIONS (1)
  - CEREBRAL HAEMORRHAGE [None]
